FAERS Safety Report 5290746-8 (Version None)
Quarter: 2007Q2

REPORT INFORMATION
  Report Type: 
  Country: None (occurrence: None)
  Receive Date: 20070405
  Receipt Date: 20070405
  Transmission Date: 20071010
  Serious: Yes (Other)
  Sender: FDA-Public Use
  Company Number: None

PATIENT
  Age: 58 Year
  Sex: Female
  Weight: 83.9154 kg

DRUGS (1)
  1. HUMIRA [Suspect]
     Indication: RHEUMATOID ARTHRITIS
     Dosage: 40 MG  EVERY TWO WEEKS  SQ
     Route: 058
     Dates: start: 20051017, end: 20070301

REACTIONS (2)
  - SKIN CANCER [None]
  - SQUAMOUS CELL CARCINOMA [None]
